FAERS Safety Report 9496751 (Version 5)
Quarter: 2014Q2

REPORT INFORMATION
  Report Type: Spontaneous
  Country: US (occurrence: US)
  Receive Date: 20130904
  Receipt Date: 20140406
  Transmission Date: 20141212
  Serious: Yes (Hospitalization, Other)
  Sender: FDA-Public Use
  Company Number: US-009507513-1112USA01090

PATIENT
  Sex: Female

DRUGS (4)
  1. FOSAMAX [Suspect]
     Indication: OSTEOPOROSIS
     Route: 048
     Dates: end: 2011
  2. FOSAMAX PLUS D [Suspect]
     Indication: OSTEOPOROSIS
     Dosage: 70-2800, UNK
     Route: 048
     Dates: start: 20050415, end: 20070501
  3. BONIVA [Concomitant]
     Indication: OSTEOPOROSIS
     Dosage: 150 MG, UNK
     Route: 048
     Dates: start: 20070507, end: 20110526
  4. HORMONES (UNSPECIFIED) [Concomitant]
     Dosage: UNK
     Dates: start: 1999, end: 2012

REACTIONS (11)
  - Femur fracture [Recovering/Resolving]
  - Intramedullary rod insertion [Unknown]
  - Intramedullary rod insertion [Unknown]
  - Appendicitis perforated [Unknown]
  - Femur fracture [Recovering/Resolving]
  - Intervertebral disc protrusion [Unknown]
  - Cataract operation [Unknown]
  - Hyperlipidaemia [Unknown]
  - Dyslipidaemia [Unknown]
  - Fibrocystic breast disease [Unknown]
  - Pain in extremity [Unknown]
